FAERS Safety Report 9308808 (Version 2)
Quarter: 2013Q3

REPORT INFORMATION
  Report Type: Report from Study
  Country: JP (occurrence: JP)
  Receive Date: 20130524
  Receipt Date: 20130807
  Transmission Date: 20140515
  Serious: Yes (Other)
  Sender: FDA-Public Use
  Company Number: JP-ROCHE-1040853

PATIENT
  Age: 68 Year
  Sex: Male

DRUGS (6)
  1. PEG-INTERFERON ALFA 2A [Suspect]
     Indication: CHRONIC HEPATITIS C
     Route: 058
     Dates: start: 20101118, end: 20110324
  2. RIBAVIRIN [Suspect]
     Indication: CHRONIC HEPATITIS C
     Route: 048
     Dates: start: 20101118, end: 20110120
  3. RIBAVIRIN [Suspect]
     Indication: CHRONIC HEPATITIS C
     Dosage: EVERY OTHER DAY 600MG AND 400MG
     Route: 048
     Dates: start: 20110121, end: 20110324
  4. LORFENAMIN [Concomitant]
     Indication: PROPHYLAXIS
     Route: 048
     Dates: end: 20110414
  5. DOGMATYL [Concomitant]
     Indication: PROPHYLAXIS
     Route: 048
     Dates: end: 20110414
  6. PARIET [Concomitant]
     Indication: PROPHYLAXIS
     Route: 048

REACTIONS (3)
  - Anaemia [Recovered/Resolved]
  - Malaise [Recovered/Resolved]
  - Prurigo [Recovering/Resolving]
